FAERS Safety Report 4691463-5 (Version None)
Quarter: 2005Q2

REPORT INFORMATION
  Report Type: 
  Country: None (occurrence: None)
  Receive Date: 20050613
  Receipt Date: 20050215
  Transmission Date: 20051028
  Serious: Yes (Other)
  Sender: FDA-Public Use
  Company Number: S05-USA-00971-01

PATIENT
  Age: 35 Year
  Sex: Male

DRUGS (6)
  1. LEXAPRO [Suspect]
     Indication: DEPRESSION
     Dosage: 15 MG QD PO
     Route: 048
     Dates: start: 20040101, end: 20041118
  2. LEXAPRO [Suspect]
     Indication: STRESS
     Dosage: 15 MG QD PO
     Route: 048
     Dates: start: 20040101, end: 20041118
  3. LEXAPRO [Suspect]
     Indication: DEPRESSION
     Dosage: 10 MG QD PO
     Route: 048
     Dates: start: 20031101, end: 20040101
  4. LEXAPRO [Suspect]
     Indication: STRESS
     Dosage: 10 MG QD PO
     Route: 048
     Dates: start: 20031101, end: 20040101
  5. ALLEGRA-D (FEXOFENADINE/PSEUDOEPHEDRINE) [Concomitant]
  6. PREVACID [Concomitant]

REACTIONS (1)
  - HYPOMANIA [None]
